FAERS Safety Report 9215978 (Version 1)
Quarter: 2013Q2

REPORT INFORMATION
  Report Type: Spontaneous
  Country: US (occurrence: US)
  Receive Date: 20130408
  Receipt Date: 20130408
  Transmission Date: 20140414
  Serious: No
  Sender: FDA-Public Use
  Company Number: US-JNJFOC-20130304964

PATIENT
  Age: 53 Year
  Sex: Female

DRUGS (3)
  1. INVEGA SUSTENNA [Suspect]
     Indication: SCHIZOPHRENIA
     Route: 030
  2. TRAZODONE [Concomitant]
     Route: 048
  3. CELEXA [Concomitant]
     Route: 048

REACTIONS (1)
  - Akathisia [Unknown]
